FAERS Safety Report 12209455 (Version 1)
Quarter: 2016Q1

REPORT INFORMATION
  Report Type: Report from Study
  Country: BE (occurrence: BE)
  Receive Date: 20160324
  Receipt Date: 20160324
  Transmission Date: 20160526
  Serious: Yes (Hospitalization)
  Sender: FDA-Public Use
  Company Number: BE-BIOGEN-2016BI00205352

PATIENT
  Age: 42 Year
  Sex: Male

DRUGS (1)
  1. AVONEX [Suspect]
     Active Substance: INTERFERON BETA-1A
     Indication: MULTIPLE SCLEROSIS
     Dosage: 22.5 MCG, 3/4 OF INJECTION 30?G
     Route: 030
     Dates: start: 20160222, end: 20160314

REACTIONS (5)
  - Mental impairment [Unknown]
  - Poor quality sleep [Unknown]
  - Pyrexia [Unknown]
  - Feeling cold [Unknown]
  - Influenza like illness [Unknown]

NARRATIVE: CASE EVENT DATE: 20160307
